FAERS Safety Report 6348959-X (Version None)
Quarter: 2009Q3

REPORT INFORMATION
  Report Type: 
  Country: None (occurrence: None)
  Receive Date: 20090908
  Receipt Date: 20090825
  Transmission Date: 20100115
  Serious: Yes (Hospitalization)
  Sender: FDA-Public Use
  Company Number: 232548K08USA

PATIENT
  Age: 61 Year
  Sex: Male
  Weight: 141 kg

DRUGS (4)
  1. REBIF [Suspect]
     Indication: MULTIPLE SCLEROSIS
     Dosage: 8.8 MCG, 3 IN 1 WEEKS, SUBCUTANEOUS
     Route: 058
     Dates: start: 20081114, end: 20081128
  2. GLUCOPHAGE [Concomitant]
  3. GABAPENTIN [Concomitant]
  4. LOMOTIL [Concomitant]

REACTIONS (2)
  - ATRIAL FIBRILLATION [None]
  - NO THERAPEUTIC RESPONSE [None]
